FAERS Safety Report 16957612 (Version 2)
Quarter: 2019Q4

REPORT INFORMATION
  Report Type: Spontaneous
  Country: BE (occurrence: BE)
  Receive Date: 20191024
  Receipt Date: 20191205
  Transmission Date: 20200122
  Serious: Yes (Other)
  Sender: FDA-Public Use
  Company Number: BE-ELI_LILLY_AND_COMPANY-BE201910007281

PATIENT
  Age: 43 Year
  Sex: Male

DRUGS (2)
  1. ZYPADHERA [Suspect]
     Active Substance: OLANZAPINE PAMOATE
     Dosage: 300 MG, OTHER/EVERY TWO WEEKS
     Route: 065
  2. ZYPADHERA [Suspect]
     Active Substance: OLANZAPINE PAMOATE
     Indication: SCHIZOPHRENIA
     Dosage: 405 MG, OTHER/EVERY TWO WEEKS
     Route: 065

REACTIONS (10)
  - Malaise [Not Recovered/Not Resolved]
  - Erythema [Not Recovered/Not Resolved]
  - Confusional state [Not Recovered/Not Resolved]
  - Logorrhoea [Not Recovered/Not Resolved]
  - Aggression [Unknown]
  - Restlessness [Not Recovered/Not Resolved]
  - Prescribed overdose [Unknown]
  - Hallucination, auditory [Not Recovered/Not Resolved]
  - Antisocial behaviour [Not Recovered/Not Resolved]
  - Discomfort [Not Recovered/Not Resolved]
